FAERS Safety Report 9442260 (Version 1)
Quarter: 2013Q3

REPORT INFORMATION
  Report Type: Spontaneous
  Country: US (occurrence: None)
  Receive Date: 20130805
  Receipt Date: 20130805
  Transmission Date: 20140515
  Serious: Yes (Life-Threatening, Hospitalization, Disabling, Other)
  Sender: FDA-Public Use
  Company Number: None

PATIENT
  Sex: Male

DRUGS (13)
  1. GEODON [Suspect]
     Indication: SEDATIVE THERAPY
     Dosage: 1 TIME RELEASE CAPSULES  ONCE ON THE  NIGHT OF HEART ATTACK
     Route: 048
  2. VITAMIN D [Concomitant]
  3. FISH OIL PILL [Concomitant]
  4. DEPAKOTE [Concomitant]
  5. METOPROLOL [Concomitant]
  6. SOTALOL [Concomitant]
  7. BLOOD PRESSURE PILL [Concomitant]
  8. HYPERTENSION PILL [Concomitant]
  9. SERTRALINE [Concomitant]
  10. COGENTEN [Concomitant]
  11. THYROID PILL [Concomitant]
  12. LORAZAPAM [Concomitant]
  13. FOLIC ACID [Concomitant]

REACTIONS (2)
  - Procedural pain [None]
  - Surgery [None]
